FAERS Safety Report 7205383-5 (Version None)
Quarter: 2010Q4

REPORT INFORMATION
  Report Type: 
  Country: None (occurrence: None)
  Receive Date: 20101231
  Receipt Date: 20101211
  Transmission Date: 20110411
  Serious: No
  Sender: FDA-Public Use
  Company Number: US-PFIZER INC-2010024464

PATIENT
  Sex: Female

DRUGS (5)
  1. CELEBREX [Suspect]
     Indication: BACK PAIN
     Dosage: UNK
     Dates: start: 20091001
  2. CELEBREX [Suspect]
     Indication: NECK PAIN
  3. ADVIL [Suspect]
     Indication: BACK PAIN
     Dosage: 1 DF, 1X/DAY
     Route: 065
     Dates: start: 20080101, end: 20091001
  4. ADVIL [Suspect]
     Indication: NECK PAIN
  5. ADVIL [Suspect]
     Indication: FIBROMYALGIA

REACTIONS (3)
  - ASTHENIA [None]
  - CHEST PAIN [None]
  - GASTROOESOPHAGEAL REFLUX DISEASE [None]
